FAERS Safety Report 10972797 (Version 3)
Quarter: 2023Q1

REPORT INFORMATION
  Report Type: Spontaneous
  Country: US (occurrence: US)
  Receive Date: 20150331
  Receipt Date: 20230119
  Transmission Date: 20230417
  Serious: Yes (Other)
  Sender: FDA-Public Use
  Company Number: US-JNJFOC-20140414549

PATIENT
  Age: 13 Year
  Sex: Male

DRUGS (4)
  1. RISPERDAL [Suspect]
     Active Substance: RISPERIDONE
     Indication: Psychotic disorder
     Route: 048
     Dates: start: 20020220, end: 20060303
  2. RISPERDAL [Suspect]
     Active Substance: RISPERIDONE
     Indication: Attention deficit hyperactivity disorder
     Route: 048
     Dates: end: 20060612
  3. RISPERDAL [Suspect]
     Active Substance: RISPERIDONE
     Dosage: 0.5 MG AT BEDTIME FOR ONE WEEK (TO BE REDUCED UPON RETURNING FROM VACATION TRIP).
     Route: 048
     Dates: start: 20060612, end: 200606
  4. RISPERDAL [Suspect]
     Active Substance: RISPERIDONE
     Route: 048
     Dates: end: 200809

REACTIONS (4)
  - Gynaecomastia [Unknown]
  - Obesity [Recovering/Resolving]
  - Abdominal discomfort [Unknown]
  - Emotional distress [Unknown]

NARRATIVE: CASE EVENT DATE: 20060601
